FAERS Safety Report 15687257 (Version 1)
Quarter: 2018Q4

REPORT INFORMATION
  Report Type: Spontaneous
  Country: IT (occurrence: IT)
  Receive Date: 20181204
  Receipt Date: 20181204
  Transmission Date: 20190205
  Serious: Yes (Hospitalization)
  Sender: FDA-Public Use
  Company Number: IT-TEVA-2018-IT-982383

PATIENT
  Age: 39 Year
  Sex: Female

DRUGS (1)
  1. AMOXICILLINA [Suspect]
     Active Substance: AMOXICILLIN
     Route: 048

REACTIONS (3)
  - Hypersensitivity [Unknown]
  - Pruritus [Unknown]
  - Oedema [Unknown]

NARRATIVE: CASE EVENT DATE: 20180119
